FAERS Safety Report 8522135-4 (Version None)
Quarter: 2012Q3

REPORT INFORMATION
  Report Type: 
  Country: None (occurrence: None)
  Receive Date: 20120719
  Receipt Date: 20120718
  Transmission Date: 20120928
  Serious: Yes (Hospitalization, Other)
  Sender: FDA-Public Use
  Company Number: US-JNJFOC-20120515948

PATIENT
  Age: 10 Year
  Sex: Female

DRUGS (6)
  1. IBUPROFEN [Suspect]
     Indication: MALAISE
     Route: 065
  2. IBUPROFEN [Suspect]
     Indication: COUGH
     Route: 065
  3. DEXTROMETHORPHAN [Suspect]
     Indication: MALAISE
     Route: 065
  4. IBUPROFEN [Suspect]
     Indication: PYREXIA
     Route: 065
  5. DEXTROMETHORPHAN [Suspect]
     Indication: COUGH
     Route: 065
  6. DEXTROMETHORPHAN [Suspect]
     Indication: PYREXIA
     Route: 065

REACTIONS (1)
  - STEVENS-JOHNSON SYNDROME [None]
